FAERS Safety Report 5526703-3 (Version None)
Quarter: 2007Q4

REPORT INFORMATION
  Report Type: 
  Country: None (occurrence: None)
  Receive Date: 20071123
  Receipt Date: 20061013
  Transmission Date: 20080405
  Serious: Yes (Hospitalization)
  Sender: FDA-Public Use
  Company Number: 2006MP001182

PATIENT
  Age: 47 Year
  Sex: Female
  Weight: 83.0083 kg

DRUGS (6)
  1. GLIADEL [Suspect]
     Indication: BRAIN NEOPLASM
     Dosage: ;X1;ICER
     Dates: start: 20060204
  2. TEMODAR [Suspect]
     Indication: BRAIN NEOPLASM
     Dosage: 390 MG;QD
     Dates: start: 20060227, end: 20060818
  3. LISINOPRIL [Concomitant]
  4. DIFLUCAN [Concomitant]
  5. KEPPRA [Concomitant]
  6. DECADRON [Concomitant]

REACTIONS (1)
  - DISEASE PROGRESSION [None]
